FAERS Safety Report 9768611 (Version 2)
Quarter: 2015Q4

REPORT INFORMATION
  Report Type: Report from Study
  Country: US (occurrence: US)
  Receive Date: 20131218
  Receipt Date: 20151029
  Transmission Date: 20160305
  Serious: Yes (Hospitalization)
  Sender: FDA-Public Use
  Company Number: US-ROCHE-1316226

PATIENT
  Age: 54 Year
  Sex: Female

DRUGS (51)
  1. MINOCIN [Concomitant]
     Active Substance: MINOCYCLINE HYDROCHLORIDE
     Route: 048
  2. GLIBENCLAMIDE [Concomitant]
     Active Substance: GLYBURIDE
     Route: 048
  3. MEDROL [Concomitant]
     Active Substance: METHYLPREDNISOLONE
     Route: 048
  4. ZOFRAN [Concomitant]
     Active Substance: ONDANSETRON HYDROCHLORIDE
     Route: 065
  5. FENTANYL. [Concomitant]
     Active Substance: FENTANYL
     Route: 042
  6. LORTAB (UNITED STATES) [Concomitant]
     Dosage: 7.5/500
     Route: 048
  7. AUGMENTIN [Concomitant]
     Active Substance: AMOXICILLIN\CLAVULANATE POTASSIUM
     Route: 048
  8. FENOFIBRATE. [Concomitant]
     Active Substance: FENOFIBRATE
     Route: 048
  9. ASPIRIN. [Concomitant]
     Active Substance: ASPIRIN
     Route: 065
  10. XANAX [Concomitant]
     Active Substance: ALPRAZOLAM
     Dosage: BID PRN ANXIETY
     Route: 048
  11. INSULIN [Concomitant]
     Active Substance: INSULIN NOS
  12. JANUMET [Concomitant]
     Active Substance: METFORMIN HYDROCHLORIDE\SITAGLIPTIN PHOSPHATE
     Route: 048
  13. JANUVIA [Concomitant]
     Active Substance: SITAGLIPTIN PHOSPHATE
  14. LANTUS [Concomitant]
     Active Substance: INSULIN GLARGINE
     Dosage: BID
     Route: 058
  15. LANTUS [Concomitant]
     Active Substance: INSULIN GLARGINE
     Dosage: 42 UNITS
     Route: 058
  16. GABAPENTIN. [Concomitant]
     Active Substance: GABAPENTIN
     Route: 065
  17. COLACE [Concomitant]
     Active Substance: DOCUSATE SODIUM
     Dosage: FOR CONSTIPATIONS
     Route: 048
  18. ZOLPIDEM [Concomitant]
     Active Substance: ZOLPIDEM\ZOLPIDEM TARTRATE
     Route: 065
  19. XOLAIR [Suspect]
     Active Substance: OMALIZUMAB
     Indication: ASTHMA
     Route: 058
  20. SYMBICORT [Concomitant]
     Active Substance: BUDESONIDE\FORMOTEROL FUMARATE DIHYDRATE
     Dosage: 2 PUFFS BID
     Route: 055
  21. VENTOLIN [Concomitant]
     Active Substance: ALBUTEROL SULFATE
  22. DILAUDID [Concomitant]
     Active Substance: HYDROMORPHONE HYDROCHLORIDE
     Dosage: FOR PAIN
     Route: 048
  23. LOSARTAN. [Concomitant]
     Active Substance: LOSARTAN
     Route: 048
  24. CITALOPRAM [Concomitant]
     Active Substance: CITALOPRAM HYDROBROMIDE
     Route: 065
  25. AMLODIPINE [Concomitant]
     Active Substance: AMLODIPINE BESYLATE
     Route: 048
  26. AMBIEN [Concomitant]
     Active Substance: ZOLPIDEM TARTRATE
     Route: 048
  27. ROBAXIN [Concomitant]
     Active Substance: METHOCARBAMOL
     Dosage: FOR PAIN
     Route: 048
  28. VERSED [Concomitant]
     Active Substance: MIDAZOLAM HYDROCHLORIDE
     Route: 042
  29. VENTOLIN HFA [Concomitant]
     Active Substance: ALBUTEROL SULFATE
     Dosage: 2 PUFFS Q6HOURS FOR WHEEZING
     Route: 055
  30. METFORMIN [Concomitant]
     Active Substance: METFORMIN HYDROCHLORIDE
     Route: 065
  31. AMLODIPINE [Concomitant]
     Active Substance: AMLODIPINE BESYLATE
     Route: 065
  32. HUMALOG [Concomitant]
     Active Substance: INSULIN LISPRO
     Dosage: INSULIN SLIDING SCALE AC AND  BEDTIME
     Route: 058
  33. AMBIEN [Concomitant]
     Active Substance: ZOLPIDEM TARTRATE
     Dosage: AT BEDTIME PRN FOR SLEEP
     Route: 048
  34. LANTUS [Concomitant]
     Active Substance: INSULIN GLARGINE
     Dosage: 35 UNITS
     Route: 058
  35. XOPENEX HFA [Concomitant]
     Active Substance: LEVALBUTEROL TARTRATE
  36. MINOCYCLINE\MINOCYCLINE HYDROCHLORIDE [Concomitant]
     Active Substance: MINOCYCLINE\MINOCYCLINE HYDROCHLORIDE
     Route: 048
  37. FLEXERIL [Concomitant]
     Active Substance: CYCLOBENZAPRINE HYDROCHLORIDE
     Route: 048
  38. CRESTOR [Concomitant]
     Active Substance: ROSUVASTATIN CALCIUM
     Route: 065
  39. GABAPENTIN. [Concomitant]
     Active Substance: GABAPENTIN
     Route: 048
  40. ULTRAM [Concomitant]
     Active Substance: TRAMADOL HYDROCHLORIDE
     Route: 065
  41. FLEXERIL [Concomitant]
     Active Substance: CYCLOBENZAPRINE HYDROCHLORIDE
     Route: 065
  42. PREDNISONE. [Concomitant]
     Active Substance: PREDNISONE
     Route: 048
  43. ROBAXIN [Concomitant]
     Active Substance: METHOCARBAMOL
     Route: 048
  44. PROTONIX (UNITED STATES) [Concomitant]
     Route: 048
  45. CITALOPRAM [Concomitant]
     Active Substance: CITALOPRAM HYDROBROMIDE
     Dosage: DAILY
     Route: 048
  46. ACTOS [Concomitant]
     Active Substance: PIOGLITAZONE HYDROCHLORIDE
     Route: 048
  47. PRAVASTATIN [Concomitant]
     Active Substance: PRAVASTATIN\PRAVASTATIN SODIUM
  48. PERCOCET [Concomitant]
     Active Substance: ACETAMINOPHEN\OXYCODONE HYDROCHLORIDE
     Dosage: 10/325
     Route: 048
  49. ASPIRIN. [Concomitant]
     Active Substance: ASPIRIN
     Route: 048
  50. GLIPIZIDE. [Concomitant]
     Active Substance: GLIPIZIDE
     Dosage: AC-BREAKFAST
     Route: 048
  51. ALPRAZOLAM. [Concomitant]
     Active Substance: ALPRAZOLAM
     Dosage: FOR ANXIETY
     Route: 065

REACTIONS (35)
  - Urinary tract infection [Unknown]
  - Dysuria [Unknown]
  - Gastritis [Unknown]
  - Lethargy [Unknown]
  - Anaemia [Unknown]
  - Back pain [Unknown]
  - Gastric ulcer [Unknown]
  - White blood cell count increased [Unknown]
  - Pyrexia [Unknown]
  - Abdominal pain [Recovered/Resolved]
  - Asthenia [Unknown]
  - Dyspnoea exertional [Unknown]
  - Chest pain [Unknown]
  - Productive cough [Unknown]
  - Cholelithiasis [Unknown]
  - Cough [Unknown]
  - Wheezing [Unknown]
  - Emotional distress [Unknown]
  - Pyelonephritis [Unknown]
  - Dyspnoea [Unknown]
  - Back pain [Unknown]
  - Blood glucose increased [Unknown]
  - Neuropathy peripheral [Unknown]
  - Hypoglycaemia [Unknown]
  - Liver function test abnormal [Unknown]
  - Mean cell volume decreased [Unknown]
  - Urine analysis abnormal [Unknown]
  - Nausea [Unknown]
  - Steatohepatitis [Unknown]
  - Haemoglobin decreased [Unknown]
  - Chronic obstructive pulmonary disease [Unknown]
  - Flank pain [Unknown]
  - Renal hypertrophy [Unknown]
  - Thrombocytopenia [Unknown]
  - Proteinuria [Unknown]

NARRATIVE: CASE EVENT DATE: 20131104
